FAERS Safety Report 16235409 (Version 3)
Quarter: 2019Q2

REPORT INFORMATION
  Report Type: Report from Study
  Country: ES (occurrence: ES)
  Receive Date: 20190424
  Receipt Date: 20190530
  Transmission Date: 20190711
  Serious: Yes (Death)
  Sender: FDA-Public Use
  Company Number: ES-EMD SERONO-E2B_90067051

PATIENT
  Age: 62 Year
  Sex: Male
  Weight: 68 kg

DRUGS (3)
  1. CISPLATIN. [Suspect]
     Active Substance: CISPLATIN
     Indication: SQUAMOUS CELL CARCINOMA OF HEAD AND NECK
     Dosage: 180 MG, EVERY 3 WEEKS, AT TIME POINTS CRT D1, CRT D22 AND CRT D43
     Route: 041
     Dates: start: 20181003, end: 20181121
  2. BLINDED STUDY MEDICATION [Suspect]
     Active Substance: INVESTIGATIONAL PRODUCT
     Indication: SQUAMOUS CELL CARCINOMA OF HEAD AND NECK
     Dosage: UNK, CYCLIC ((TWICE EVERY 28 DAYS ON DAY 1 OF LEAD-IN PHASE; DAYS 8, 25, AND 39 OF CRT PHASE;
     Dates: start: 20181009, end: 20190117
  3. MORPHINE [Concomitant]
     Active Substance: MORPHINE
     Indication: PAIN
     Dosage: UNK
     Dates: start: 20190307, end: 20190308

REACTIONS (2)
  - Respiratory failure [Fatal]
  - Aspiration [Fatal]

NARRATIVE: CASE EVENT DATE: 20190305
